FAERS Safety Report 10601304 (Version 2)
Quarter: 2014Q4

REPORT INFORMATION
  Report Type: Report from Study
  Country: NL (occurrence: NL)
  Receive Date: 20141124
  Receipt Date: 20141212
  Transmission Date: 20150529
  Serious: Yes (Death, Other)
  Sender: FDA-Public Use
  Company Number: NL-ABBVIE-14P-114-1309868-00

PATIENT
  Sex: Male

DRUGS (1)
  1. LUCRIN DEPOT (LEUPRORELINE) [Suspect]
     Active Substance: LEUPROLIDE ACETATE
     Indication: PROSTATE CANCER
     Route: 058
     Dates: start: 20101001

REACTIONS (2)
  - Cardiac disorder [Fatal]
  - General physical health deterioration [Unknown]
